FAERS Safety Report 6640195-2 (Version None)
Quarter: 2010Q1

REPORT INFORMATION
  Report Type: 
  Country: None (occurrence: None)
  Receive Date: 20100318
  Receipt Date: 20100317
  Transmission Date: 20100710
  Serious: Yes (Hospitalization)
  Sender: FDA-Public Use
  Company Number: DE-AMGEN-UK380880

PATIENT
  Age: 41 Year
  Sex: Male

DRUGS (4)
  1. ARANESP [Suspect]
     Indication: ANAEMIA
     Route: 042
     Dates: start: 20040607
  2. ASPIRIN [Concomitant]
  3. CALCIUM ACETATE [Concomitant]
  4. ANTI-PHOSPHAT [Concomitant]

REACTIONS (1)
  - SHUNT OCCLUSION [None]
